FAERS Safety Report 4462626-9 (Version None)
Quarter: 2004Q3

REPORT INFORMATION
  Report Type: 
  Country: None (occurrence: None)
  Receive Date: 20040929
  Receipt Date: 20040915
  Transmission Date: 20050211
  Serious: Yes (Other)
  Sender: FDA-Public Use
  Company Number: 2004-DE-04871GD

PATIENT
  Age: 76 Year
  Sex: Male

DRUGS (3)
  1. MIRAPEX [Suspect]
     Indication: PARKINSON'S DISEASE
  2. SINEMET [Suspect]
     Indication: PARKINSON'S DISEASE
  3. COMTAN (ENTACAPONE) (NR) [Suspect]
     Indication: PARKINSON'S DISEASE

REACTIONS (4)
  - DRUG INEFFECTIVE [None]
  - HEMIPARESIS [None]
  - PROCEDURAL COMPLICATION [None]
  - SQUAMOUS CELL CARCINOMA [None]
